FAERS Safety Report 5086911-5 (Version None)
Quarter: 2006Q3

REPORT INFORMATION
  Report Type: 
  Country: None (occurrence: None)
  Receive Date: 20060818
  Receipt Date: 20060807
  Transmission Date: 20061208
  Serious: Yes (Other)
  Sender: FDA-Public Use
  Company Number: 2006097637

PATIENT
  Age: 59 Year
  Sex: Female
  Weight: 68.0396 kg

DRUGS (7)
  1. LYRICA [Suspect]
     Indication: PAIN
     Dosage: 75 MG (75 MG, 1 IN 1 D)
     Dates: start: 20060806
  2. LIPITOR [Concomitant]
  3. URSODIOL [Concomitant]
  4. OMEPRAZOLE [Concomitant]
  5. MULTIVITAMIN [Concomitant]
  6. VITAMIN E [Concomitant]
  7. CALCIUM WITH VITAMIN D [Concomitant]

REACTIONS (3)
  - DIZZINESS [None]
  - INSOMNIA [None]
  - SOMNOLENCE [None]
